FAERS Safety Report 7753652-2 (Version None)
Quarter: 2011Q3

REPORT INFORMATION
  Report Type: 
  Country: None (occurrence: None)
  Receive Date: 20110915
  Receipt Date: 20110901
  Transmission Date: 20111222
  Serious: Yes (Other)
  Sender: FDA-Public Use
  Company Number: US-JNJFOC-20110903624

PATIENT
  Age: 50 Year
  Sex: Female
  Weight: 83.92 kg

DRUGS (3)
  1. LISINOPRIL [Concomitant]
     Indication: HYPERTENSION
     Route: 065
  2. VISINE-A [Suspect]
     Indication: OCULAR HYPERAEMIA
     Dosage: POURED/SQUEEEZED THE LIQUID IN HIS LEFT EYE.
     Route: 047
     Dates: start: 20110901, end: 20110901
  3. ESTRADIOL [Concomitant]
     Indication: HORMONE REPLACEMENT THERAPY
     Route: 065

REACTIONS (8)
  - WRONG TECHNIQUE IN DRUG USAGE PROCESS [None]
  - LIQUID PRODUCT PHYSICAL ISSUE [None]
  - EYE IRRITATION [None]
  - HEADACHE [None]
  - EXPIRED DRUG ADMINISTERED [None]
  - OCULAR HYPERAEMIA [None]
  - APPLICATION SITE PAIN [None]
  - PRODUCT ODOUR ABNORMAL [None]
